FAERS Safety Report 4885625-1 (Version None)
Quarter: 2005Q4

REPORT INFORMATION
  Report Type: 
  Country: None (occurrence: None)
  Receive Date: 20051220
  Receipt Date: 20041202
  Transmission Date: 20060501
  Serious: Yes (Hospitalization)
  Sender: FDA-Public Use
  Company Number: HQWYE780007DEC04

PATIENT
  Age: 37 Year
  Sex: Female
  Weight: 93.07 kg

DRUGS (2)
  1. EFFEXOR XR [Suspect]
     Dosage: TAPERED OFF, ORAL; 37.5 MG, ORAL
     Route: 048
  2. LAMICTAL [Concomitant]

REACTIONS (4)
  - DIZZINESS [None]
  - DRUG WITHDRAWAL SYNDROME [None]
  - HYPERTENSION [None]
  - NAUSEA [None]
